FAERS Safety Report 11293342 (Version 5)
Quarter: 2016Q4

REPORT INFORMATION
  Report Type: Spontaneous
  Country: PT (occurrence: PT)
  Receive Date: 20150722
  Receipt Date: 20161220
  Transmission Date: 20170206
  Serious: Yes (Other)
  Sender: FDA-Public Use
  Company Number: PT-ASTRAZENECA-2015SE58917

PATIENT
  Age: 67 Year
  Sex: Female

DRUGS (17)
  1. IRESSA [Suspect]
     Active Substance: GEFITINIB
     Indication: LUNG ADENOCARCINOMA
     Route: 048
     Dates: start: 20150210
  2. OCULOTECT [Concomitant]
     Indication: MACULAR DEGENERATION
     Route: 065
  3. MINERALS [Concomitant]
     Active Substance: MINERALS
  4. OMEPRAZOLE. [Concomitant]
     Active Substance: OMEPRAZOLE
     Indication: PRODUCT USED FOR UNKNOWN INDICATION
     Route: 048
  5. VITAMINS [Concomitant]
     Active Substance: VITAMINS
     Route: 048
  6. ATACAND [Concomitant]
     Active Substance: CANDESARTAN CILEXETIL
     Indication: HYPERTENSION
     Route: 048
     Dates: start: 2012
  7. VIARTRIL S [Concomitant]
     Indication: OSTEOARTHRITIS
     Route: 048
     Dates: start: 2012
  8. LUTEIN [Concomitant]
     Active Substance: LUTEIN
  9. ANTI DEPRESSANT [Concomitant]
     Active Substance: UNSPECIFIED INGREDIENT
  10. NSAIDS [Concomitant]
     Active Substance: UNSPECIFIED INGREDIENT
     Indication: ARTHRALGIA
  11. VIARTRIL S [Concomitant]
     Indication: PRODUCT USED FOR UNKNOWN INDICATION
     Route: 048
     Dates: start: 2012
  12. OCULOTECT [Concomitant]
     Indication: PRODUCT USED FOR UNKNOWN INDICATION
     Route: 065
  13. ZEAXANTHIN [Concomitant]
     Active Substance: ZEAXANTHIN
  14. OMEGA-3 ACIDS [Concomitant]
     Active Substance: OMEGA-3 FATTY ACIDS
  15. VIARTRIL S [Concomitant]
     Indication: MACULAR DEGENERATION
     Route: 048
     Dates: start: 2012
  16. OPHTHALMIC [Concomitant]
     Dosage: OPHTHALMIC GEL BASED ON DEXPANTHENOL, CARBOMER, EDETATE DISODIUM, SODIUM HYDROXIDE, WATER AND CETRIM
  17. PROVIDONE [Concomitant]
     Dosage: 50MG/ML

REACTIONS (10)
  - Paronychia [Unknown]
  - Hair growth abnormal [Not Recovered/Not Resolved]
  - Pyogenic granuloma [Unknown]
  - Nail disorder [Unknown]
  - Gingival bleeding [Not Recovered/Not Resolved]
  - Corneal erosion [Not Recovered/Not Resolved]
  - Dry mouth [Not Recovered/Not Resolved]
  - Growth of eyelashes [Not Recovered/Not Resolved]
  - Alopecia [Not Recovered/Not Resolved]
  - Dry eye [Not Recovered/Not Resolved]

NARRATIVE: CASE EVENT DATE: 2015
